FAERS Safety Report 5096805-7 (Version None)
Quarter: 2006Q3

REPORT INFORMATION
  Report Type: 
  Country: None (occurrence: None)
  Receive Date: 20060831
  Receipt Date: 20060811
  Transmission Date: 20061208
  Serious: Yes (Hospitalization)
  Sender: FDA-Public Use
  Company Number: 2006097451

PATIENT
  Age: 70 Year
  Sex: Female
  Weight: 40.5 kg

DRUGS (5)
  1. IRINOTECAN HCL [Suspect]
     Indication: OVARIAN CANCER
     Dosage: SEE IMAGE
     Route: 042
     Dates: start: 20060509, end: 20060509
  2. IRINOTECAN HCL [Suspect]
     Indication: OVARIAN CANCER
     Dosage: SEE IMAGE
     Route: 042
     Dates: start: 20060512, end: 20060526
  3. IRINOTECAN HCL [Suspect]
     Indication: OVARIAN CANCER
     Dosage: SEE IMAGE
     Route: 042
     Dates: start: 20060609, end: 20060623
  4. IRINOTECAN HCL [Suspect]
     Indication: OVARIAN CANCER
     Dosage: SEE IMAGE
     Route: 042
     Dates: start: 20060711, end: 20060725
  5. NORVASC [Concomitant]

REACTIONS (6)
  - BLOOD PRESSURE DECREASED [None]
  - HEART RATE ABNORMAL [None]
  - HYPOKALAEMIA [None]
  - LOSS OF CONSCIOUSNESS [None]
  - SYNCOPE VASOVAGAL [None]
  - URINARY INCONTINENCE [None]
